FAERS Safety Report 4383429-X (Version None)
Quarter: 2004Q2

REPORT INFORMATION
  Report Type: 
  Country: None (occurrence: None)
  Receive Date: 20040618
  Receipt Date: 20040529
  Transmission Date: 20050107
  Serious: Yes (Death)
  Sender: FDA-Public Use
  Company Number: EWC040639463

PATIENT
  Age: 3 Month
  Sex: Female
  Weight: 6 kg

DRUGS (1)
  1. CEFACLOR [Suspect]
     Indication: IMPETIGO
     Dosage: 7 DSG FORM
     Dates: start: 20040515

REACTIONS (1)
  - ANAPHYLACTIC SHOCK [None]
